FAERS Safety Report 14764524 (Version 1)
Quarter: 2018Q2

REPORT INFORMATION
  Report Type: Spontaneous
  Country: US (occurrence: US)
  Receive Date: 20180415
  Receipt Date: 20180415
  Transmission Date: 20180711
  Serious: Yes (Hospitalization, Disabling, Other)
  Sender: FDA-Public Use
  Company Number: None

PATIENT
  Age: 25 Year
  Sex: Male
  Weight: 54 kg

DRUGS (4)
  1. TYLENOL [Concomitant]
     Active Substance: ACETAMINOPHEN
  2. ONE A DAY MEN^S VITAMINS [Concomitant]
  3. KRATOM [Suspect]
     Active Substance: MITRAGYNINE\HERBALS
     Indication: PAIN
     Dosage: ?          QUANTITY:150 DF DOSAGE FORM;?
     Route: 048
     Dates: start: 20180307, end: 20180415
  4. EXCEDRIN [Concomitant]
     Active Substance: ACETAMINOPHEN\ASPIRIN\CAFFEINE

REACTIONS (12)
  - Decreased appetite [None]
  - Constipation [None]
  - Pyrexia [None]
  - Hot flush [None]
  - Gastroenteritis salmonella [None]
  - Feeling abnormal [None]
  - Tremor [None]
  - Vomiting [None]
  - Weight decreased [None]
  - Chills [None]
  - Apparent death [None]
  - Night sweats [None]

NARRATIVE: CASE EVENT DATE: 20180307
